FAERS Safety Report 6417031-2 (Version None)
Quarter: 2009Q4

REPORT INFORMATION
  Report Type: 
  Country: None (occurrence: None)
  Receive Date: 20091026
  Receipt Date: 20091014
  Transmission Date: 20100525
  Serious: Yes (Death, Other)
  Sender: FDA-Public Use
  Company Number: CLOF-1000696

PATIENT
  Age: 34 Year
  Sex: Male

DRUGS (3)
  1. EVOLRA (CLOFARABINE) SOLUTION FOR INFUSION [Suspect]
     Indication: ACUTE LYMPHOCYTIC LEUKAEMIA
     Dosage: 40 MG/M2, QD, INTRAVENOUS
     Route: 042
     Dates: start: 20090608, end: 20090612
  2. ETOPOSIDE [Suspect]
     Indication: ACUTE LYMPHOCYTIC LEUKAEMIA
     Dosage: 170 MG, UNK, INTRAVENOUS
     Route: 042
     Dates: start: 20090608, end: 20090612
  3. CYCLOPHOSPHAMIDE [Suspect]
     Indication: ACUTE LYMPHOCYTIC LEUKAEMIA
     Dosage: 750 MG, UNK, UNKNOWN
     Dates: start: 20090608, end: 20090612

REACTIONS (12)
  - BRADYPHRENIA [None]
  - CENTRAL NERVOUS SYSTEM VIRAL INFECTION [None]
  - COMA [None]
  - CONFUSIONAL STATE [None]
  - DRUG RESISTANCE [None]
  - HERPES VIRUS INFECTION [None]
  - HYDROCEPHALUS [None]
  - LEUKOPENIA [None]
  - NEUROLOGICAL DECOMPENSATION [None]
  - PYREXIA [None]
  - SOMNOLENCE [None]
  - THROMBOCYTOPENIA [None]
